FAERS Safety Report 13280354 (Version 1)
Quarter: 2017Q1

REPORT INFORMATION
  Report Type: Spontaneous
  Country: NL (occurrence: NL)
  Receive Date: 20170301
  Receipt Date: 20170301
  Transmission Date: 20170428
  Serious: Yes (Other)
  Sender: FDA-Public Use
  Company Number: NL-ROCHE-1897066

PATIENT
  Sex: Male

DRUGS (1)
  1. RIVOTRIL [Suspect]
     Active Substance: CLONAZEPAM
     Indication: SLEEP DISORDER
     Dosage: 4 DROPS PER NIGHT FOR 15 YEARS
     Route: 065

REACTIONS (6)
  - Metamorphopsia [Recovered/Resolved]
  - Off label use [Unknown]
  - Cerebrovascular accident [Recovered/Resolved]
  - Leukoencephalopathy [Unknown]
  - Drug dependence [Unknown]
  - Diplopia [Recovered/Resolved]

NARRATIVE: CASE EVENT DATE: 2012
